FAERS Safety Report 9098654 (Version 1)
Quarter: 2013Q1

REPORT INFORMATION
  Report Type: Spontaneous
  Country: US (occurrence: US)
  Receive Date: 20130213
  Receipt Date: 20130213
  Transmission Date: 20140127
  Serious: No
  Sender: FDA-Public Use
  Company Number: US-ALLERGAN-1217158US

PATIENT
  Age: 48 Year
  Sex: Female

DRUGS (2)
  1. LASTACAFT [Suspect]
     Indication: PRODUCT USED FOR UNKNOWN INDICATION
     Dosage: UNK
     Route: 047
     Dates: start: 20120824, end: 20121025
  2. LASTACAFT [Suspect]
     Dosage: UNK
     Route: 047
     Dates: start: 20121026, end: 20121117

REACTIONS (4)
  - Eyelids pruritus [Unknown]
  - Lacrimation increased [Unknown]
  - Eyelid oedema [Unknown]
  - Erythema of eyelid [Unknown]
